FAERS Safety Report 9294560 (Version 2)
Quarter: 2014Q2

REPORT INFORMATION
  Report Type: Spontaneous
  Country: US (occurrence: US)
  Receive Date: 20130517
  Receipt Date: 20140430
  Transmission Date: 20141212
  Serious: No
  Sender: FDA-Public Use
  Company Number: US-BIOGENIDEC-2013BI026701

PATIENT
  Age: 62 Year
  Sex: Male

DRUGS (5)
  1. AVONEX [Suspect]
     Indication: MULTIPLE SCLEROSIS
     Route: 030
     Dates: start: 20130201
  2. AVONEX [Suspect]
     Indication: MULTIPLE SCLEROSIS
     Route: 030
     Dates: start: 20130209
  3. AVONEX [Suspect]
     Indication: MULTIPLE SCLEROSIS
     Route: 030
     Dates: start: 20130222, end: 20131201
  4. TESTOSTERONE SHOTS [Concomitant]
     Indication: PRODUCT USED FOR UNKNOWN INDICATION
  5. TIZANDINE [Concomitant]
     Indication: MULTIPLE SCLEROSIS

REACTIONS (8)
  - Diverticulitis [Recovered/Resolved]
  - Adverse event [Recovered/Resolved]
  - Influenza like illness [Recovered/Resolved]
  - Arthralgia [Recovered/Resolved]
  - Dizziness [Recovered/Resolved]
  - Pain in extremity [Not Recovered/Not Resolved]
  - Anxiety [Recovered/Resolved]
  - Feeling hot [Not Recovered/Not Resolved]
